FAERS Safety Report 17033646 (Version 2)
Quarter: 2019Q4

REPORT INFORMATION
  Report Type: Not Available
  Country: US (occurrence: US)
  Receive Date: 20191114
  Receipt Date: 20191122
  Transmission Date: 20200122
  Serious: Yes (Death, Other)
  Sender: FDA-Public Use
  Company Number: US-NEUROCRINE BIOSCIENCES INC.-2019NBI03386

PATIENT
  Age: 59 Year
  Sex: Male

DRUGS (1)
  1. INGREZZA [Suspect]
     Active Substance: VALBENAZINE
     Indication: TARDIVE DYSKINESIA
     Route: 048
     Dates: start: 20181022

REACTIONS (4)
  - Hypercholesterolaemia [Fatal]
  - Fall [Unknown]
  - Head injury [Unknown]
  - Tremor [Unknown]

NARRATIVE: CASE EVENT DATE: 201907
